FAERS Safety Report 6766801-X (Version None)
Quarter: 2010Q2

REPORT INFORMATION
  Report Type: 
  Country: None (occurrence: None)
  Receive Date: 20100609
  Receipt Date: 20100527
  Transmission Date: 20101027
  Serious: Yes (Death, Hospitalization)
  Sender: FDA-Public Use
  Company Number: 2010AL003136

PATIENT
  Age: 63 Year
  Sex: Male
  Weight: 85 kg

DRUGS (2)
  1. NAPROXEN DELAYED-RELEASE RELEASE [Suspect]
     Dosage: 500 MG; TID;
     Dates: start: 20070608, end: 20070610
  2. DOXYCYCLINE [Concomitant]

REACTIONS (16)
  - ALANINE AMINOTRANSFERASE INCREASED [None]
  - ASCITES [None]
  - ASPARTATE AMINOTRANSFERASE INCREASED [None]
  - ASTHENIA [None]
  - BILIRUBIN CONJUGATED INCREASED [None]
  - BLOOD ALKALINE PHOSPHATASE INCREASED [None]
  - BLOOD BILIRUBIN INCREASED [None]
  - CHOLESTASIS [None]
  - CHROMATURIA [None]
  - COAGULOPATHY [None]
  - DECREASED APPETITE [None]
  - ENCEPHALOPATHY [None]
  - HEPATIC NECROSIS [None]
  - JAUNDICE [None]
  - RENAL FAILURE [None]
  - WEIGHT DECREASED [None]
